FAERS Safety Report 7978532-9 (Version None)
Quarter: 2011Q4

REPORT INFORMATION
  Report Type: 
  Country: None (occurrence: None)
  Receive Date: 20111214
  Receipt Date: 20111202
  Transmission Date: 20120403
  Serious: Yes (Other)
  Sender: FDA-Public Use
  Company Number: US-AMGEN-TCS419548

PATIENT
  Age: 69 Year
  Sex: Male

DRUGS (1)
  1. ENBREL [Suspect]
     Indication: ANKYLOSING SPONDYLITIS
     Dosage: 50 MG, Q3WK
     Route: 058
     Dates: start: 20070409

REACTIONS (11)
  - NASOPHARYNGITIS [None]
  - VASCULAR CALCIFICATION [None]
  - LIVER DISORDER [None]
  - LUNG DISORDER [None]
  - RHINORRHOEA [None]
  - SINUSITIS [None]
  - CATARACT [None]
  - ASBESTOSIS [None]
  - VISUAL IMPAIRMENT [None]
  - RENAL DISORDER [None]
  - SINUS CONGESTION [None]
